FAERS Safety Report 4749508-X (Version None)
Quarter: 2005Q3

REPORT INFORMATION
  Report Type: 
  Country: None (occurrence: None)
  Receive Date: 20050819
  Receipt Date: 20050802
  Transmission Date: 20060218
  Serious: Yes (Death, Hospitalization)
  Sender: FDA-Public Use
  Company Number: 2005S1004939

PATIENT
  Age: 63 Year
  Sex: Male

DRUGS (6)
  1. FENTANYL [Suspect]
     Indication: CANCER PAIN
     Dosage: 50 MVG/HR; Q3D; TDER
     Route: 062
     Dates: start: 20050614
  2. HYDROCODONE BITARTRATE AND ACETAMINOPHEN [Suspect]
     Indication: CANCER PAIN
     Dosage: 7.5 MG; PO
     Route: 048
  3. LEVOTHYROXINE SODIUM [Concomitant]
  4. VITAMINS [Concomitant]
  5. VINCRISTINE [Concomitant]
  6. CYCLOPHOSPHAMIDE [Concomitant]

REACTIONS (7)
  - ASTHENIA [None]
  - HODGKIN'S DISEASE [None]
  - MALIGNANT NEOPLASM PROGRESSION [None]
  - PAIN [None]
  - PHARMACEUTICAL PRODUCT COMPLAINT [None]
  - RED BLOOD CELL COUNT ABNORMAL [None]
  - WHITE BLOOD CELL COUNT ABNORMAL [None]
